FAERS Safety Report 14681261 (Version 1)
Quarter: 2018Q1

REPORT INFORMATION
  Report Type: Report from Study
  Country: HK (occurrence: HK)
  Receive Date: 20180326
  Receipt Date: 20180326
  Transmission Date: 20180509
  Serious: Yes (Other)
  Sender: FDA-Public Use
  Company Number: HK-TEVA-2018-HK-872116

PATIENT
  Age: 47 Year
  Sex: Female

DRUGS (1)
  1. WARFARIN [Suspect]
     Active Substance: WARFARIN
     Indication: ANTICOAGULANT THERAPY
     Dosage: 3 MILLIGRAM DAILY; 3MG DAILY
     Route: 065

REACTIONS (3)
  - Post procedural haemorrhage [Unknown]
  - Haemoglobin decreased [Unknown]
  - Abdominal pain [Unknown]
